FAERS Safety Report 11895724 (Version 4)
Quarter: 2016Q1

REPORT INFORMATION
  Report Type: Report from Study
  Country: AU (occurrence: AU)
  Receive Date: 20160107
  Receipt Date: 20160226
  Transmission Date: 20160526
  Serious: Yes (Death, Hospitalization)
  Sender: FDA-Public Use
  Company Number: AU-B.I. PHARMACEUTICALS,INC./RIDGEFIELD-2015-BI-71419BI

PATIENT
  Age: 80 Year
  Sex: Female

DRUGS (14)
  1. AVAPRO [Concomitant]
     Active Substance: IRBESARTAN
     Indication: HYPERTENSION
     Dosage: 75 MG
     Route: 048
  2. VASOCARDOL [Concomitant]
     Indication: HYPERTENSION
     Dosage: 360 MG
     Route: 048
  3. OPTIVAR ADVANCE [Concomitant]
     Indication: EYE INFECTION
     Dosage: DAILY DOSE: 2 DROPS (LEFT EYE)
     Route: 061
     Dates: start: 201505
  4. PANADOL [Concomitant]
     Active Substance: ACETAMINOPHEN
     Indication: ARTHRALGIA
     Dosage: 1995 MG
     Route: 048
  5. OSTELIN VIT D [Concomitant]
     Indication: OSTEOPOROSIS
     Dosage: DAILY DOSE: T DAILY
     Route: 048
  6. VENTOLIN [Concomitant]
     Active Substance: ALBUTEROL SULFATE
     Indication: CHRONIC OBSTRUCTIVE PULMONARY DISEASE
     Dosage: DOSE PER APPLICATION  AND DAILY DOSE - 2-6 PUFFS
     Route: 055
  7. BI 1744+TIOTROPIUM BROMIDE [Suspect]
     Active Substance: OLODATEROL\TIOTROPIUM BROMIDE
     Indication: CHRONIC OBSTRUCTIVE PULMONARY DISEASE
     Dosage: DOSE PER APPLICATION: 2.5; DAILY DOSE: 2 PUFFS (PRESCRIBED)
     Route: 055
     Dates: start: 20151203, end: 20160104
  8. PROLIA [Concomitant]
     Active Substance: DENOSUMAB
     Indication: OSTEOPOROSIS
     Dosage: DAILY DOSE: EACH 6 MONTHS
     Route: 058
  9. SALBUTAMOL [Concomitant]
     Active Substance: ALBUTEROL
     Indication: CHRONIC OBSTRUCTIVE PULMONARY DISEASE
     Dosage: STRENGTH: 100MCG
     Route: 055
     Dates: end: 20160104
  10. WARFARIN [Concomitant]
     Active Substance: WARFARIN
     Indication: ATRIAL FIBRILLATION
     Route: 048
  11. LASIX [Concomitant]
     Active Substance: FUROSEMIDE
     Indication: RIGHT VENTRICULAR FAILURE
     Dosage: 80 MG
     Route: 048
  12. ZOCOR [Concomitant]
     Active Substance: SIMVASTATIN
     Indication: DYSLIPIDAEMIA
     Dosage: 40 MG
     Route: 048
  13. VASOCARDOL [Concomitant]
     Indication: ATRIAL FIBRILLATION
  14. SOMAC [Concomitant]
     Active Substance: PANTOPRAZOLE SODIUM
     Indication: DYSPEPSIA
     Dosage: 40 MG
     Route: 048

REACTIONS (2)
  - Cardio-respiratory arrest [Fatal]
  - Chronic obstructive pulmonary disease [Unknown]

NARRATIVE: CASE EVENT DATE: 20151215
